FAERS Safety Report 20485412 (Version 2)
Quarter: 2022Q2

REPORT INFORMATION
  Report Type: Spontaneous
  Country: JP (occurrence: JP)
  Receive Date: 20220217
  Receipt Date: 20220411
  Transmission Date: 20220721
  Serious: Yes (Hospitalization)
  Sender: FDA-Public Use
  Company Number: JP-DSJP-DSJ-2022-105195

PATIENT
  Age: 68 Year
  Sex: Female
  Weight: 63 kg

DRUGS (8)
  1. ENHERTU [Suspect]
     Active Substance: FAM-TRASTUZUMAB DERUXTECAN-NXKI
     Indication: HER2 positive breast cancer
     Dosage: 5.4 MG/KG, ONCE EVERY 3 WK
     Route: 041
     Dates: start: 20210817, end: 20210817
  2. ENHERTU [Suspect]
     Active Substance: FAM-TRASTUZUMAB DERUXTECAN-NXKI
     Indication: Invasive ductal breast carcinoma
     Dosage: 5.4 MG/KG, ONCE EVERY 3 WK
     Route: 041
     Dates: start: 20210908, end: 20210908
  3. ENHERTU [Suspect]
     Active Substance: FAM-TRASTUZUMAB DERUXTECAN-NXKI
     Dosage: 4.2 MG/KG, ONCE EVERY 3 WK
     Route: 041
     Dates: start: 20211004, end: 20211004
  4. ENHERTU [Suspect]
     Active Substance: FAM-TRASTUZUMAB DERUXTECAN-NXKI
     Dosage: 4.2 MG/KG, ONCE EVERY 3 WK
     Route: 041
     Dates: start: 20211025, end: 20211025
  5. ENHERTU [Suspect]
     Active Substance: FAM-TRASTUZUMAB DERUXTECAN-NXKI
     Dosage: 4.2 MG/KG, ONCE EVERY 3 WK
     Route: 041
     Dates: start: 20211122, end: 20211122
  6. ENHERTU [Suspect]
     Active Substance: FAM-TRASTUZUMAB DERUXTECAN-NXKI
     Dosage: 4.2 MG/KG, ONCE EVERY 3 WK
     Route: 041
     Dates: start: 20211213, end: 20211213
  7. ENHERTU [Suspect]
     Active Substance: FAM-TRASTUZUMAB DERUXTECAN-NXKI
     Dosage: 4.2 MG/KG, ONCE EVERY 3 WK
     Route: 041
     Dates: start: 20220104, end: 20220104
  8. ENHERTU [Suspect]
     Active Substance: FAM-TRASTUZUMAB DERUXTECAN-NXKI
     Dosage: 4.2 MG/KG, ONCE EVERY 3 WK
     Route: 041
     Dates: start: 20220125, end: 20220125

REACTIONS (3)
  - Urinary tract infection [Recovering/Resolving]
  - Anaemia [Recovering/Resolving]
  - Urinary tract infection [Recovering/Resolving]

NARRATIVE: CASE EVENT DATE: 20210917
